FAERS Safety Report 8872720 (Version 1)
Quarter: 2012Q4

REPORT INFORMATION
  Report Type: 
  Country: US (occurrence: US)
  Receive Date: 20121026
  Receipt Date: 20121026
  Transmission Date: 20130627
  Serious: No
  Sender: FDA-Public Use
  Company Number: US-AMGEN-USASP2012046584

PATIENT
  Age: 36 Year
  Sex: Female

DRUGS (5)
  1. ENBREL [Suspect]
     Indication: PRODUCT USED FOR UNKNOWN INDICATION
     Dosage: UNK
  2. MAXALT                             /01406501/ [Concomitant]
     Dosage: 10 mg, UNK
  3. OMEPRAZOLE [Concomitant]
     Dosage: 40 mg, UNK
  4. HYDROCODONE/APAP [Concomitant]
     Dosage: 10-325 mg
  5. YAZ                                /06358701/ [Concomitant]
     Dosage: 3-0.02 mg

REACTIONS (4)
  - Muscle spasms [Unknown]
  - Injection site reaction [Recovered/Resolved]
  - Impaired healing [Unknown]
  - Fluid retention [Unknown]
